FAERS Safety Report 19055556 (Version 2)
Quarter: 2021Q2

REPORT INFORMATION
  Report Type: Report from Study
  Country: US (occurrence: US)
  Receive Date: 20210325
  Receipt Date: 20210401
  Transmission Date: 20210717
  Serious: Yes (Other)
  Sender: FDA-Public Use
  Company Number: NVSC2021US056393

PATIENT
  Sex: Female

DRUGS (2)
  1. ENTRESTO [Suspect]
     Active Substance: SACUBITRIL\VALSARTAN
     Indication: PRODUCT USED FOR UNKNOWN INDICATION
     Dosage: UNK UNK, BID
     Route: 048
  2. ENTRESTO [Suspect]
     Active Substance: SACUBITRIL\VALSARTAN
     Dosage: UNK
     Route: 048

REACTIONS (12)
  - Hypertension [Recovered/Resolved]
  - Fatigue [Unknown]
  - Diabetes mellitus [Unknown]
  - Frustration tolerance decreased [Unknown]
  - Feeling abnormal [Recovered/Resolved]
  - Asthenia [Recovering/Resolving]
  - Somnolence [Unknown]
  - Fluid retention [Not Recovered/Not Resolved]
  - Bundle branch block left [Unknown]
  - Oxygen consumption increased [Unknown]
  - Therapeutic response unexpected [Unknown]
  - Product dose omission issue [Unknown]
